FAERS Safety Report 15462976 (Version 13)
Quarter: 2021Q3

REPORT INFORMATION
  Report Type: Spontaneous
  Country: US (occurrence: US)
  Receive Date: 20181004
  Receipt Date: 20210721
  Transmission Date: 20211014
  Serious: Yes (Death, Other)
  Sender: FDA-Public Use
  Company Number: US-PFIZER INC-2016535791

PATIENT
  Age: 88 Year
  Sex: Female
  Weight: 97 kg

DRUGS (23)
  1. LYRICA [Suspect]
     Active Substance: PREGABALIN
     Indication: POLYNEUROPATHY
     Dosage: 150 MG, DAILY (3 CAPSULES BY MOUTH DAILY)
     Route: 048
  2. TEMAZEPAM. [Concomitant]
     Active Substance: TEMAZEPAM
     Dosage: 15 MG, AS NEEDED (1 CAPSULE AT BED TIME AS NEEDED ORALLY ONCE A DAY)
     Route: 048
  3. OMEPRAZOLE. [Concomitant]
     Active Substance: OMEPRAZOLE
     Dosage: 20 MG, 1X/DAY
     Route: 048
  4. LYRICA [Suspect]
     Active Substance: PREGABALIN
     Dosage: 200 MG, DAILY (4 CAPSULES BY MOUTH DAILY)
     Route: 048
  5. LEVOTHYROXINE SODIUM. [Concomitant]
     Active Substance: LEVOTHYROXINE SODIUM
     Dosage: 100 UG, 1X/DAY
     Route: 048
  6. POTASSIUM [Concomitant]
     Active Substance: POTASSIUM
     Dosage: 99 MG, 1X/DAY
     Route: 048
  7. OCUVITE [Concomitant]
     Active Substance: VITAMINS
     Dosage: UNK
     Route: 048
  8. LYRICA [Suspect]
     Active Substance: PREGABALIN
     Indication: NEUROPATHY PERIPHERAL
     Dosage: 50 MG, DAILY (1 CAPSULE BY MOUTH DAILY)
     Route: 048
  9. AUGMENTIN [Concomitant]
     Active Substance: AMOXICILLIN\CLAVULANATE POTASSIUM
     Dosage: 1 DF, 2X/DAY (875?125 MG 1 TABLET ORALLY EVERY12 HRS)
     Route: 048
  10. CRANBERRY. [Concomitant]
     Active Substance: CRANBERRY
     Dosage: 425 MG, UNK
     Route: 048
  11. L?LYSINE [Concomitant]
     Active Substance: LYSINE
     Dosage: 500 MG, UNK
     Route: 048
  12. MAGNESIUM [Concomitant]
     Active Substance: MAGNESIUM
     Dosage: 250 MG, 1X/DAY (1 TABLET WITH A MEAL)
     Route: 048
  13. NITROGLYCERIN. [Concomitant]
     Active Substance: NITROGLYCERIN
     Indication: CHEST PAIN
     Dosage: 0.4 MG, AS NEEDED (95 MINUTES PRN)
     Route: 060
  14. AMITRIPTYLINE HCL [Concomitant]
     Active Substance: AMITRIPTYLINE
     Dosage: 25 MG, 1X/DAY
     Route: 048
  15. SPIRONOLACTONE?HCTZ [Concomitant]
     Active Substance: HYDROCHLOROTHIAZIDE\SPIRONOLACTONE
     Dosage: 1 DF, 1X/DAY (SPIRONOLACTONE: 25 MG, HYDROCHLOROTHIAZIDE:25 MG)
     Route: 048
  16. LYRICA [Suspect]
     Active Substance: PREGABALIN
     Dosage: 375 MG, DAILY (1 CAPSULE 5 TIMES PER DAY) (1 CAPSULE FIVE TIMES A DAY 90 DAYS)
     Route: 048
  17. COUMADIN [Concomitant]
     Active Substance: WARFARIN SODIUM
     Dosage: 4 MG, 1X/DAY
     Route: 048
  18. KETOCONAZOLE. [Concomitant]
     Active Substance: KETOCONAZOLE
     Dosage: 2 %, 1X/DAY (1 APPLICATION TO AFFECTED AREA EXTERNALLY ONCE A DAY)
     Route: 061
  19. VITAMIN D [Concomitant]
     Active Substance: VITAMIN D NOS
     Dosage: 1000 IU, 1X/DAY
     Route: 048
  20. LYRICA [Suspect]
     Active Substance: PREGABALIN
     Indication: NEUROPATHY PERIPHERAL
     Dosage: 100 MG, DAILY (2 CAPSULES BY MOUTH DAILY)
     Route: 048
  21. VITAMIN C [Concomitant]
     Active Substance: ASCORBIC ACID
     Dosage: 1000 MG, 1X/DAY
     Route: 048
  22. LYRICA [Suspect]
     Active Substance: PREGABALIN
     Dosage: 250 MG, DAILY (5 CAPSULES BY MOUTH DAILY)
     Route: 048
  23. COUMADIN [Concomitant]
     Active Substance: WARFARIN SODIUM
     Dosage: 3 MG, ALTERNATE DAY
     Route: 048

REACTIONS (11)
  - Therapeutic product effect incomplete [Unknown]
  - Limb discomfort [Not Recovered/Not Resolved]
  - Blindness [Not Recovered/Not Resolved]
  - Macular degeneration [Not Recovered/Not Resolved]
  - General physical health deterioration [Not Recovered/Not Resolved]
  - Gait disturbance [Unknown]
  - Death [Fatal]
  - Insomnia [Not Recovered/Not Resolved]
  - Hypoaesthesia [Unknown]
  - Fatigue [Unknown]
  - Body height decreased [Not Recovered/Not Resolved]
